FAERS Safety Report 7075441-7 (Version None)
Quarter: 2010Q4

REPORT INFORMATION
  Report Type: 
  Country: None (occurrence: None)
  Receive Date: 20101030
  Receipt Date: 20100908
  Transmission Date: 20110411
  Serious: No
  Sender: FDA-Public Use
  Company Number: US-WYE-H17454110

PATIENT
  Sex: Male
  Weight: 94.43 kg

DRUGS (4)
  1. PRISTIQ [Suspect]
     Indication: DEPRESSION
     Dates: start: 20100701, end: 20100901
  2. PRAVASTATIN [Concomitant]
  3. OMEPRAZOLE [Concomitant]
  4. PROSCAR [Concomitant]

REACTIONS (4)
  - ABNORMAL DREAMS [None]
  - DIZZINESS [None]
  - SEXUAL DYSFUNCTION [None]
  - UNEVALUABLE EVENT [None]
